FAERS Safety Report 5905657-1 (Version None)
Quarter: 2008Q4

REPORT INFORMATION
  Report Type: 
  Country: None (occurrence: None)
  Receive Date: 20081002
  Receipt Date: 20081001
  Transmission Date: 20090506
  Serious: Yes (Hospitalization, Other)
  Sender: FDA-Public Use
  Company Number: US-BAYER-US-2007-029679

PATIENT
  Age: 74 Year
  Sex: Female
  Weight: 70 kg

DRUGS (4)
  1. BETASERON [Suspect]
     Indication: MULTIPLE SCLEROSIS
     Dates: start: 20050401
  2. CLONAZEPAM [Concomitant]
     Dates: start: 20030101
  3. CYMBALTA [Concomitant]
     Dates: start: 20051201
  4. BACLOFEN [Concomitant]
     Dates: start: 20040101

REACTIONS (5)
  - ERYTHEMA [None]
  - LOCALISED INFECTION [None]
  - LYMPHOEDEMA [None]
  - PRURITUS GENERALISED [None]
  - UNEVALUABLE EVENT [None]
